FAERS Safety Report 6195612-1 (Version None)
Quarter: 2009Q2

REPORT INFORMATION
  Report Type: 
  Country: None (occurrence: None)
  Receive Date: 20090519
  Receipt Date: 20090512
  Transmission Date: 20091009
  Serious: Yes (Other)
  Sender: FDA-Public Use
  Company Number: PHHY2009FR16395

PATIENT
  Sex: Female

DRUGS (2)
  1. VOLTAREN [Suspect]
     Indication: SCIATICA
     Dosage: UNK
     Route: 030
     Dates: start: 20070101
  2. MAGNESIUM SULFATE [Concomitant]

REACTIONS (6)
  - BIOPSY SKIN [None]
  - INFLAMMATION [None]
  - PIGMENTATION DISORDER [None]
  - PRURITUS [None]
  - SCLERODERMA [None]
  - SKIN PLAQUE [None]
